FAERS Safety Report 8331034-2 (Version None)
Quarter: 2012Q2

REPORT INFORMATION
  Report Type: 
  Country: None (occurrence: None)
  Receive Date: 20120502
  Receipt Date: 20120409
  Transmission Date: 20120825
  Serious: No
  Sender: FDA-Public Use
  Company Number: US-AMGEN-USASP2012016794

PATIENT
  Age: 58 Year
  Sex: Female

DRUGS (3)
  1. ENBREL [Suspect]
     Indication: RHEUMATOID ARTHRITIS
     Dosage: 50 MG, QWK
     Dates: start: 20111109
  2. PLAQUENIL [Concomitant]
     Dosage: 2 MG, UNK
  3. METHOTREXATE [Concomitant]
     Dosage: 1 MG, UNK
     Dates: start: 20110101

REACTIONS (7)
  - OEDEMA PERIPHERAL [None]
  - ASTHENIA [None]
  - INJECTION SITE DISCOMFORT [None]
  - IRRITABLE BOWEL SYNDROME [None]
  - MEMORY IMPAIRMENT [None]
  - DIVERTICULUM [None]
  - DIARRHOEA [None]
